FAERS Safety Report 4879076-3 (Version None)
Quarter: 2005Q4

REPORT INFORMATION
  Report Type: 
  Country: None (occurrence: None)
  Receive Date: 20051212
  Receipt Date: 20050823
  Transmission Date: 20060501
  Serious: Yes (Death)
  Sender: FDA-Public Use
  Company Number: 05P-163-0309080-00

PATIENT
  Age: 16 Year
  Sex: Female

DRUGS (2)
  1. CLARITHROMYCIN [Suspect]
     Dosage: 500 MG, 2 IN 1 D
     Dates: start: 20050731, end: 20050801
  2. MEDROL [Concomitant]

REACTIONS (1)
  - DEATH [None]
